FAERS Safety Report 10717975 (Version 2)
Quarter: 2015Q1

REPORT INFORMATION
  Report Type: Report from Study
  Country: CA (occurrence: CA)
  Receive Date: 20150116
  Receipt Date: 20150317
  Transmission Date: 20150721
  Serious: Yes (Death, Hospitalization, Other)
  Sender: FDA-Public Use
  Company Number: CA-ASTRAZENECA-2012SE55197

PATIENT
  Age: 27682 Day
  Sex: Male

DRUGS (21)
  1. EUFLEX [Concomitant]
     Dates: start: 201212
  2. TAXOTERE [Concomitant]
     Active Substance: DOCETAXEL
     Dates: start: 201301
  3. ZYTIGA [Concomitant]
     Active Substance: ABIRATERONE ACETATE
     Dates: start: 201302
  4. XTANDI/MDV3100 [Concomitant]
     Dates: start: 201312
  5. XGEVA [Concomitant]
     Active Substance: DENOSUMAB
  6. AMIODARONE [Concomitant]
     Active Substance: AMIODARONE
  7. CALCIUM IV [Concomitant]
     Indication: ANGIOPATHY
  8. RANITIDINE [Concomitant]
     Active Substance: RANITIDINE\RANITIDINE HYDROCHLORIDE
  9. HYDROMORPHONE [Concomitant]
     Active Substance: HYDROMORPHONE
     Dosage: PRN
  10. DENOSUMAB [Concomitant]
     Active Substance: DENOSUMAB
     Dates: start: 201207
  11. VITAMIN B12 [Concomitant]
     Active Substance: CYANOCOBALAMIN
  12. ZOLADEX LA [Suspect]
     Active Substance: GOSERELIN ACETATE
     Indication: PROSTATE CANCER
     Route: 058
     Dates: start: 20091104, end: 20150305
  13. PANTOPRAZOLE [Concomitant]
     Active Substance: PANTOPRAZOLE SODIUM
  14. METOPROLOL [Concomitant]
     Active Substance: METOPROLOL
  15. CIPRO [Concomitant]
     Active Substance: CIPROFLOXACIN HYDROCHLORIDE
  16. CRESTOR [Suspect]
     Active Substance: ROSUVASTATIN CALCIUM
     Route: 048
  17. HYDROMORPHONE [Concomitant]
     Active Substance: HYDROMORPHONE
  18. FRAGMIN [Concomitant]
     Active Substance: DALTEPARIN SODIUM
     Indication: PULMONARY EMBOLISM
  19. CASODEX [Suspect]
     Active Substance: BICALUTAMIDE
     Route: 048
     Dates: start: 2012
  20. PANTOLOC [Concomitant]
     Active Substance: PANTOPRAZOLE SODIUM
  21. DECADRON [Concomitant]
     Active Substance: DEXAMETHASONE

REACTIONS (8)
  - Pulmonary embolism [Not Recovered/Not Resolved]
  - Kidney injury molecule-1 [Not Recovered/Not Resolved]
  - Bladder dilatation [Not Recovered/Not Resolved]
  - Decreased appetite [Not Recovered/Not Resolved]
  - Fatigue [Not Recovered/Not Resolved]
  - Metastases to bone [Not Recovered/Not Resolved]
  - Death [Fatal]
  - Application site haemorrhage [Recovered/Resolved]

NARRATIVE: CASE EVENT DATE: 20120730
